FAERS Safety Report 4687589-2 (Version None)
Quarter: 2005Q2

REPORT INFORMATION
  Report Type: 
  Country: None (occurrence: None)
  Receive Date: 20050610
  Receipt Date: 20050421
  Transmission Date: 20051028
  Serious: Yes (Hospitalization)
  Sender: FDA-Public Use
  Company Number: DE-BRISTOL-MYERS SQUIBB COMPANY-12951190

PATIENT
  Age: 60 Year
  Sex: Female

DRUGS (3)
  1. CETUXIMAB [Suspect]
     Indication: NON-SMALL CELL LUNG CANCER
     Dosage: MOST RECENT INFUSION 15-APR-05 (10TH INFUSION).
     Route: 041
     Dates: start: 20050210
  2. CISPLATIN [Suspect]
     Indication: NON-SMALL CELL LUNG CANCER
     Dosage: MOST RECENT INFUSION 15-APR-05 (4TH INFUSION)
     Route: 042
     Dates: start: 20050210
  3. VINORELBINE TARTRATE [Suspect]
     Indication: NON-SMALL CELL LUNG CANCER
     Dosage: MOST RECENT INFUSION 15-APR-05 (7TH DOSE).
     Route: 042
     Dates: start: 20050210

REACTIONS (3)
  - CONFUSIONAL STATE [None]
  - HEADACHE [None]
  - MALIGNANT NEOPLASM PROGRESSION [None]
